FAERS Safety Report 4494534-1 (Version None)
Quarter: 2004Q4

REPORT INFORMATION
  Report Type: 
  Country: None (occurrence: None)
  Receive Date: 20041105
  Receipt Date: 20041008
  Transmission Date: 20050328
  Serious: Yes (Death, Other)
  Sender: FDA-Public Use
  Company Number: JP-MERCK-0410USA01830

PATIENT
  Age: 70 Year
  Sex: Female

DRUGS (10)
  1. PEPCID [Suspect]
     Indication: PEPTIC ULCER
     Route: 042
     Dates: start: 20040903, end: 20041005
  2. ADONA [Concomitant]
     Route: 048
     Dates: start: 20040826, end: 20040827
  3. ADONA [Concomitant]
     Route: 042
  4. TRANSAMIN [Concomitant]
     Route: 042
     Dates: start: 20040826, end: 20040827
  5. NICHOLIN [Concomitant]
     Route: 042
     Dates: start: 20040830, end: 20040914
  6. LUCIDRIL [Concomitant]
     Route: 042
     Dates: start: 20040830, end: 20040914
  7. PERDIPINE [Concomitant]
     Route: 042
     Dates: start: 20040830, end: 20041002
  8. PENTCILLIN [Concomitant]
     Route: 042
     Dates: start: 20040902, end: 20040917
  9. STRONGER NEO-MINOPHAGEN C [Concomitant]
     Route: 042
     Dates: start: 20041005, end: 20041005
  10. GLUTATHIONE [Concomitant]
     Route: 042
     Dates: start: 20041005, end: 20041005

REACTIONS (9)
  - ANAEMIA [None]
  - BLOOD PRESSURE DECREASED [None]
  - CONDITION AGGRAVATED [None]
  - DEPRESSED LEVEL OF CONSCIOUSNESS [None]
  - DISSEMINATED INTRAVASCULAR COAGULATION [None]
  - HAEMODIALYSIS [None]
  - HEPATIC FAILURE [None]
  - HEPATIC FUNCTION ABNORMAL [None]
  - THROMBOCYTOPENIA [None]
